FAERS Safety Report 10997755 (Version 1)
Quarter: 2015Q2

REPORT INFORMATION
  Report Type: Spontaneous
  Country: US (occurrence: None)
  Receive Date: 20150407
  Receipt Date: 20150407
  Transmission Date: 20150821
  Serious: Yes (Other)
  Sender: FDA-Public Use
  Company Number: None

PATIENT
  Age: 36 Year
  Sex: Male
  Weight: 147 kg

DRUGS (14)
  1. PROPRANOLOL [Concomitant]
     Active Substance: PROPRANOLOL\PROPRANOLOL HYDROCHLORIDE
  2. FLUOXETINE [Concomitant]
     Active Substance: FLUOXETINE\FLUOXETINE HYDROCHLORIDE
  3. ACETAMINOPHEN 650 MG [Concomitant]
  4. KCL 20 MEQ [Concomitant]
  5. NACL 0.9% [Concomitant]
  6. ALLOPURINOL 300 MG [Concomitant]
     Active Substance: ALLOPURINOL
  7. BACTRIM DS [Concomitant]
     Active Substance: SULFAMETHOXAZOLE\TRIMETHOPRIM
  8. ACYCLOVIR 200 MG [Concomitant]
  9. POSACONAZOLE 200 MG [Concomitant]
  10. MAGNESIUM SULFATE. [Concomitant]
     Active Substance: MAGNESIUM SULFATE
  11. ENOXAPARIN 40 MG [Concomitant]
  12. DEXAMETHASONE 20 MG [Concomitant]
  13. DYAZIDE [Concomitant]
     Active Substance: HYDROCHLOROTHIAZIDE\TRIAMTERENE
  14. BLINCYTO [Suspect]
     Active Substance: BLINATUMOMAB
     Indication: ACUTE LYMPHOCYTIC LEUKAEMIA
     Dosage: 9 MCG/DAY DAYS 1-7, 28 MCG/DAY QD
     Route: 042
     Dates: start: 20150312, end: 20150327

REACTIONS (6)
  - Hypomagnesaemia [None]
  - Infusion related reaction [None]
  - Ventricular extrasystoles [None]
  - Blood pressure increased [None]
  - Ventricular tachycardia [None]
  - Pyrexia [None]

NARRATIVE: CASE EVENT DATE: 20150313
